FAERS Safety Report 21121102 (Version 3)
Quarter: 2022Q4

REPORT INFORMATION
  Report Type: Spontaneous
  Country: CN (occurrence: CN)
  Receive Date: 20220722
  Receipt Date: 20221120
  Transmission Date: 20230113
  Serious: Yes (Death)
  Sender: FDA-Public Use
  Company Number: CN-JNJFOC-20220733914

PATIENT

DRUGS (1)
  1. DARZALEX [Suspect]
     Active Substance: DARATUMUMAB
     Indication: Product used for unknown indication
     Dosage: 400MG/20ML/VIAL/BOX.?INFUSED 2 VIALS, FREQUENCY NOT REPORTED.
     Route: 041

REACTIONS (2)
  - Cerebral haemorrhage [Fatal]
  - Infusion related reaction [Fatal]
